FAERS Safety Report 18752786 (Version 1)
Quarter: 2021Q1

REPORT INFORMATION
  Report Type: Spontaneous
  Country: DE (occurrence: DE)
  Receive Date: 20210118
  Receipt Date: 20210118
  Transmission Date: 20210419
  Serious: Yes (Life-Threatening, Hospitalization, Other)
  Sender: FDA-Public Use
  Company Number: DE-009507513-2101DEU007188

PATIENT
  Age: 65 Year
  Sex: Female

DRUGS (1)
  1. KEYTRUDA [Suspect]
     Active Substance: PEMBROLIZUMAB
     Indication: MALIGNANT NEOPLASM OF THYMUS
     Dosage: 200MG EVERY 3 WEEKS
     Dates: start: 201905, end: 20190506

REACTIONS (13)
  - Discomfort [Unknown]
  - Myalgia [Unknown]
  - Myocarditis [Recovered/Resolved]
  - Respiratory failure [Unknown]
  - Asthenia [Unknown]
  - Endotracheal intubation [Recovered/Resolved]
  - Dysphagia [Unknown]
  - Mechanical ventilation [Unknown]
  - Perforation [Unknown]
  - Product use in unapproved indication [Unknown]
  - Myositis [Unknown]
  - Myasthenic syndrome [Unknown]
  - Diplopia [Unknown]

NARRATIVE: CASE EVENT DATE: 2019
